FAERS Safety Report 5811337-3 (Version None)
Quarter: 2008Q3

REPORT INFORMATION
  Report Type: 
  Country: None (occurrence: None)
  Receive Date: 20080710
  Receipt Date: 20080702
  Transmission Date: 20090109
  Serious: Yes (Death)
  Sender: FDA-Public Use
  Company Number: 2008US001717

PATIENT
  Age: 3 Year

DRUGS (4)
  1. PROGRAF [Suspect]
     Indication: RENAL TRANSPLANT
  2. CORTICOSTEROIDS [Concomitant]
  3. MYCOPHENOLATE MOFETIL [Concomitant]
  4. SIMULECT [Concomitant]

REACTIONS (4)
  - FUNGAL SEPSIS [None]
  - PNEUMONIA ADENOVIRAL [None]
  - PSEUDOMONAL SEPSIS [None]
  - PULMONARY HYPOPLASIA [None]
